FAERS Safety Report 4532629-4 (Version None)
Quarter: 2004Q4

REPORT INFORMATION
  Report Type: 
  Country: None (occurrence: None)
  Receive Date: 20041220
  Receipt Date: 20041220
  Transmission Date: 20050328
  Serious: Yes (Other)
  Sender: FDA-Public Use
  Company Number: None

PATIENT
  Sex: Female
  Weight: 76.2043 kg

DRUGS (2)
  1. ALPRAZOLAM [Suspect]
     Indication: BACK PAIN
     Dosage: 1 MG PO QID
     Route: 048
  2. ALPRAZOLAM [Suspect]
     Indication: DEPRESSION
     Dosage: 1 MG PO QID
     Route: 048

REACTIONS (4)
  - NAUSEA [None]
  - RASH [None]
  - URTICARIA [None]
  - VOMITING [None]
